FAERS Safety Report 14921848 (Version 1)
Quarter: 2018Q2

REPORT INFORMATION
  Report Type: Spontaneous
  Country: DE (occurrence: DE)
  Receive Date: 20180522
  Receipt Date: 20180522
  Transmission Date: 20180711
  Serious: Yes (Other)
  Sender: FDA-Public Use
  Company Number: DE-SUN PHARMACEUTICAL INDUSTRIES LTD-2018RR-173421

PATIENT
  Age: 58 Year
  Sex: Female
  Weight: 67 kg

DRUGS (1)
  1. ALENDRONSAURE BASICS EINMAL WOCHENTLICH 70MG TABLETTEN [Suspect]
     Active Substance: ALENDRONATE SODIUM
     Indication: OSTEOPOROSIS
     Dosage: 1 MAL WOCHENTLICH 1 TBL. 70 MG
     Route: 048
     Dates: start: 20180204

REACTIONS (2)
  - Parkinson^s disease [Recovered/Resolved]
  - Therapeutic response decreased [Recovered/Resolved]

NARRATIVE: CASE EVENT DATE: 201802
